FAERS Safety Report 15143671 (Version 1)
Quarter: 2018Q3

REPORT INFORMATION
  Report Type: Spontaneous
  Country: CH (occurrence: CH)
  Receive Date: 20180713
  Receipt Date: 20180713
  Transmission Date: 20181010
  Serious: Yes (Other)
  Sender: FDA-Public Use
  Company Number: CH-PFIZER INC-2018280880

PATIENT
  Age: 60 Year
  Sex: Female

DRUGS (26)
  1. METHADONE [Suspect]
     Active Substance: METHADONE HYDROCHLORIDE
     Indication: DRUG ABUSE
     Dosage: 150 MG, 1X/DAY
     Route: 048
  2. SAROTEN [Suspect]
     Active Substance: AMITRIPTYLINE
     Dosage: 50 MG, 1X/DAY (IN THE EVENING)
     Route: 048
     Dates: end: 20180610
  3. ZEPATIER [Concomitant]
     Active Substance: ELBASVIR\GRAZOPREVIR
     Dosage: UNK
  4. PURSANA [Concomitant]
     Active Substance: FIG FRUIT OIL\SORBITOL
     Dosage: UNK
  5. ONDANSETRON [Suspect]
     Active Substance: ONDANSETRON
     Dosage: 8 MG, 2X/DAY (AT 11:00 AND AT 20:00)
     Route: 048
     Dates: start: 20180619, end: 20180619
  6. BARACLUDE [Concomitant]
     Active Substance: ENTECAVIR
     Dosage: UNK
     Dates: start: 20180614
  7. SAROTEN [Suspect]
     Active Substance: AMITRIPTYLINE
     Dosage: 75 MG, 1X/DAY
     Route: 048
     Dates: start: 20180611, end: 20180619
  8. SIRDALUD [Concomitant]
     Active Substance: TIZANIDINE
     Dosage: UNK
     Dates: end: 201806
  9. CALCIMAGON D3 [Concomitant]
     Active Substance: CALCIUM\CHOLECALCIFEROL
     Dosage: UNK
  10. RITUXIMAB. [Concomitant]
     Active Substance: RITUXIMAB
     Dosage: 1 DF, SINGLE
     Dates: start: 20180613, end: 20180613
  11. TOVIAZ [Suspect]
     Active Substance: FESOTERODINE FUMARATE
     Dosage: 4 MG, 1X/DAY
     Dates: end: 20180619
  12. METHADONE [Suspect]
     Active Substance: METHADONE HYDROCHLORIDE
     Dosage: 150 MG, SINGLE
     Route: 048
     Dates: start: 20180616, end: 20180616
  13. METHADONE [Suspect]
     Active Substance: METHADONE HYDROCHLORIDE
     Dosage: 150 MG, SINGLE
     Route: 048
     Dates: start: 20180618, end: 20180618
  14. FOLIC ACID. [Concomitant]
     Active Substance: FOLIC ACID
     Dosage: UNK
  15. CIPROFLOXACINE [Suspect]
     Active Substance: CIPROFLOXACIN
     Dosage: 500 MG, 2X/DAY
     Route: 048
     Dates: start: 20180615, end: 20180619
  16. BACTRIM [Suspect]
     Active Substance: SULFAMETHOXAZOLE\TRIMETHOPRIM
     Dosage: 160 MG, EVERY 3 WEEKS
     Route: 048
     Dates: start: 20180615, end: 20180618
  17. CHOP [Concomitant]
     Active Substance: CYCLOPHOSPHAMIDE\DOXORUBICIN\PREDNISONE\VINCRISTINE
     Dosage: UNK, CYCLIC
     Dates: start: 20180618
  18. VALTREX [Concomitant]
     Active Substance: VALACYCLOVIR HYDROCHLORIDE
     Dosage: UNK
  19. NEXIUM [Suspect]
     Active Substance: ESOMEPRAZOLE MAGNESIUM
     Dosage: 20 MG, 1X/DAY
     Route: 048
     Dates: start: 20180611
  20. METHADONE [Suspect]
     Active Substance: METHADONE HYDROCHLORIDE
     Dosage: 150 MG, AS NEEDED
     Route: 048
  21. GABAPENTINE [Concomitant]
     Active Substance: GABAPENTIN
     Dosage: UNK
  22. EUTHYROX [Concomitant]
     Active Substance: LEVOTHYROXINE SODIUM
     Dosage: UNK
  23. MST CONTINUS [Concomitant]
     Active Substance: MORPHINE SULFATE
     Dosage: UNK
  24. ALENDRONATE [Concomitant]
     Active Substance: ALENDRONATE SODIUM
     Dosage: 70 MG, WEEKLY
  25. ZYLORIC [Concomitant]
     Active Substance: ALLOPURINOL
     Dosage: UNK
     Dates: start: 20180613
  26. RIVOTRIL [Concomitant]
     Active Substance: CLONAZEPAM
     Dosage: UNK
     Dates: start: 20180613

REACTIONS (1)
  - Electrocardiogram QT prolonged [Not Recovered/Not Resolved]

NARRATIVE: CASE EVENT DATE: 20180619
